FAERS Safety Report 23670616 (Version 1)
Quarter: 2024Q1

REPORT INFORMATION
  Report Type: Spontaneous
  Country: CH (occurrence: CH)
  Receive Date: 20240326
  Receipt Date: 20240326
  Transmission Date: 20240409
  Serious: Yes (Other)
  Sender: FDA-Public Use
  Company Number: None

PATIENT

DRUGS (7)
  1. INFLECTRA [Suspect]
     Active Substance: INFLIXIMAB-DYYB
     Indication: Crohn^s disease
     Dosage: 1 DF, EVERY 8 WEEKS
     Route: 041
     Dates: start: 20231103
  2. SHINGRIX [Suspect]
     Active Substance: RECOMBINANT VARICELLA ZOSTER VIRUS (VZV) GLYCOPROTEIN E
     Indication: Herpes zoster immunisation
     Dosage: UNK, SINGLE
     Route: 030
     Dates: start: 20231024, end: 20231024
  3. SHINGRIX [Suspect]
     Active Substance: RECOMBINANT VARICELLA ZOSTER VIRUS (VZV) GLYCOPROTEIN E
     Dosage: DOSE 2, SINGLE
     Route: 030
     Dates: start: 20231227, end: 20231227
  4. SPIKEVAX (ANDUSOMERAN) [Suspect]
     Active Substance: ANDUSOMERAN
     Indication: COVID-19 immunisation
     Dosage: UNK, SINGLE
     Route: 030
     Dates: start: 20231113, end: 20231113
  5. VAXIGRIP [Suspect]
     Active Substance: INFLUENZA VIRUS VACCINE
     Indication: Influenza immunisation
     Dosage: UNK, SINGLE
     Route: 030
     Dates: start: 20231113, end: 20231113
  6. MESALAMINE [Concomitant]
     Active Substance: MESALAMINE
     Indication: Crohn^s disease
     Dosage: UNK
  7. PRAMIPEXOLE [Concomitant]
     Active Substance: PRAMIPEXOLE\PRAMIPEXOLE DIHYDROCHLORIDE
     Indication: Restless legs syndrome
     Dosage: 0.375 MG, DAILY CHRONIC THERAPY
     Route: 048

REACTIONS (2)
  - Optic ischaemic neuropathy [Unknown]
  - Cataract nuclear [Unknown]

NARRATIVE: CASE EVENT DATE: 20231201
